FAERS Safety Report 10019289 (Version 6)
Quarter: 2020Q4

REPORT INFORMATION
  Report Type: Spontaneous
  Country: CA (occurrence: CA)
  Receive Date: 20140318
  Receipt Date: 20201103
  Transmission Date: 20210113
  Serious: Yes (Hospitalization, Other)
  Sender: FDA-Public Use
  Company Number: CA-PFIZER INC-2013297143

PATIENT
  Age: 37 Year
  Sex: Male

DRUGS (11)
  1. SANDOSTATIN [Concomitant]
     Active Substance: OCTREOTIDE ACETATE
     Dosage: 30 MG, MONTHLY
  2. SOMAVERT [Suspect]
     Active Substance: PEGVISOMANT
     Dosage: 20 MG, 1X/DAY
     Dates: start: 20131030
  3. SYNTHROID [Concomitant]
     Active Substance: LEVOTHYROXINE SODIUM
     Dosage: UNK
     Route: 065
  4. SOMAVERT [Suspect]
     Active Substance: PEGVISOMANT
     Dosage: 45 MG/ DAY (30+15)
     Route: 058
     Dates: start: 2018
  5. DOSTINEX [Concomitant]
     Active Substance: CABERGOLINE
     Dosage: 0.5 MG, DAILY
  6. SANDOSTATIN [Concomitant]
     Active Substance: OCTREOTIDE ACETATE
     Dosage: 20 MG, EVERY MONTH
     Route: 030
  7. SOMAVERT [Suspect]
     Active Substance: PEGVISOMANT
     Dosage: 30 MG, DAILY
     Route: 058
     Dates: start: 20140108
  8. DOSTINEX [Concomitant]
     Active Substance: CABERGOLINE
     Dosage: 1 MG, WEEKLY
  9. TESTOSTERONE. [Concomitant]
     Active Substance: TESTOSTERONE
     Dosage: UNK
     Route: 065
  10. SOMAVERT [Suspect]
     Active Substance: PEGVISOMANT
     Indication: ACROMEGALY
     Dosage: 20 MG, DAILY INJECTION
     Route: 058
     Dates: start: 20131010, end: 20131013
  11. DOSTINEX [Concomitant]
     Active Substance: CABERGOLINE
     Dosage: 2 MG, WEEKLY

REACTIONS (16)
  - Prescribed overdose [Unknown]
  - Anaphylactic shock [Recovered/Resolved]
  - Dyspnoea exertional [Recovered/Resolved]
  - Nausea [Recovered/Resolved]
  - Oropharyngeal pain [Not Recovered/Not Resolved]
  - Chest pain [Recovered/Resolved]
  - Drug intolerance [Recovered/Resolved]
  - Eyelid oedema [Recovered/Resolved]
  - Erythema [Recovered/Resolved]
  - Urticaria [Recovered/Resolved]
  - Headache [Recovered/Resolved]
  - Hypoaesthesia [Recovered/Resolved]
  - Paraesthesia [Recovered/Resolved]
  - Pruritus [Recovered/Resolved]
  - Drug ineffective [Unknown]
  - Myalgia [Recovered/Resolved]

NARRATIVE: CASE EVENT DATE: 20131012
